FAERS Safety Report 7997332-7 (Version None)
Quarter: 2011Q4

REPORT INFORMATION
  Report Type: 
  Country: None (occurrence: None)
  Receive Date: 20111221
  Receipt Date: 20111213
  Transmission Date: 20120403
  Serious: Yes (Hospitalization)
  Sender: FDA-Public Use
  Company Number: FR-JNJFOC-20111207788

PATIENT
  Sex: Male

DRUGS (3)
  1. PREZISTA [Suspect]
     Indication: HIV INFECTION
     Route: 048
     Dates: start: 20110107, end: 20110119
  2. TRUVADA [Concomitant]
     Indication: HIV INFECTION
     Route: 048
  3. NORVIR [Suspect]
     Indication: HIV INFECTION
     Route: 048
     Dates: start: 20110107, end: 20110119

REACTIONS (6)
  - RENAL FAILURE ACUTE [None]
  - ACUTE GENERALISED EXANTHEMATOUS PUSTULOSIS [None]
  - CELL DEATH [None]
  - ORAL MUCOSA EROSION [None]
  - EOSINOPHILIA [None]
  - RASH GENERALISED [None]
